FAERS Safety Report 4638834-0 (Version None)
Quarter: 2005Q2

REPORT INFORMATION
  Report Type: 
  Country: None (occurrence: None)
  Receive Date: 20050418
  Receipt Date: 20050418
  Transmission Date: 20051028
  Serious: Yes (Disabling)
  Sender: FDA-Public Use
  Company Number: None

PATIENT
  Age: 35 Year
  Sex: Male
  Weight: 81.6475 kg

DRUGS (4)
  1. KLONOPIN [Suspect]
     Indication: ANXIETY
     Dosage: 1 MG 3X   DAY   ORAL
     Route: 048
     Dates: start: 19920401, end: 19980112
  2. SSRI'S [Concomitant]
  3. XANAX [Concomitant]
  4. ATIVAN [Concomitant]

REACTIONS (2)
  - DEPERSONALISATION [None]
  - DEREALISATION [None]
